FAERS Safety Report 7583136-6 (Version None)
Quarter: 2011Q2

REPORT INFORMATION
  Report Type: 
  Country: None (occurrence: None)
  Receive Date: 20110630
  Receipt Date: 20100527
  Transmission Date: 20111010
  Serious: No
  Sender: FDA-Public Use
  Company Number: US-ASTRAZENECA-2010SE19183

PATIENT
  Age: 57 Year
  Sex: Male
  Weight: 117.9 kg

DRUGS (1)
  1. ZOLADEX [Suspect]
     Indication: PROSTATE CANCER
     Route: 058
     Dates: start: 20100428

REACTIONS (1)
  - DEVICE FAILURE [None]
